FAERS Safety Report 6902280-7 (Version None)
Quarter: 2010Q3

REPORT INFORMATION
  Report Type: 
  Country: None (occurrence: None)
  Receive Date: 20100803
  Receipt Date: 20080506
  Transmission Date: 20110219
  Serious: Yes (Other)
  Sender: FDA-Public Use
  Company Number: US-PFIZER INC-2008030089

PATIENT
  Sex: Female
  Weight: 93 kg

DRUGS (21)
  1. LYRICA [Suspect]
     Indication: NEUROPATHY PERIPHERAL
     Dates: start: 20080201
  2. GABAPENTIN [Suspect]
     Indication: NEUROPATHY PERIPHERAL
     Dates: start: 20040101
  3. PROZAC [Concomitant]
  4. LASIX [Concomitant]
  5. EVISTA [Concomitant]
  6. NEXIUM [Concomitant]
  7. RELAFEN [Concomitant]
  8. ADVAIR DISKUS 100/50 [Concomitant]
  9. SINGULAIR [Concomitant]
  10. ROZEREM [Concomitant]
  11. ALLEGRA [Concomitant]
  12. ZETIA [Concomitant]
  13. PRAVACHOL [Concomitant]
  14. SKELAXIN [Concomitant]
  15. QUININE SULFATE [Concomitant]
     Indication: MUSCLE SPASMS
  16. ASTELIN [Concomitant]
  17. FLONASE [Concomitant]
  18. OXYCODONE HCL [Concomitant]
  19. MAXAIR [Concomitant]
  20. ELIDEL [Concomitant]
  21. ZOVIRAX [Concomitant]
     Route: 061

REACTIONS (4)
  - DRUG INEFFECTIVE [None]
  - HEADACHE [None]
  - OEDEMA PERIPHERAL [None]
  - WEIGHT INCREASED [None]
